FAERS Safety Report 5698050-0 (Version None)
Quarter: 2008Q2

REPORT INFORMATION
  Report Type: 
  Country: None (occurrence: None)
  Receive Date: 20080408
  Receipt Date: 20080331
  Transmission Date: 20081010
  Serious: Yes (Other)
  Sender: FDA-Public Use
  Company Number: GB-ROCHE-556119

PATIENT
  Sex: Female
  Weight: 96.6 kg

DRUGS (4)
  1. ORLISTAT [Suspect]
     Indication: OBESITY
     Route: 048
     Dates: start: 20071205, end: 20080318
  2. HYPURIN NEUTRAL [Concomitant]
  3. HYPURIN ISOPHANE [Concomitant]
  4. SIMVASTATIN [Concomitant]
     Route: 048

REACTIONS (2)
  - BLOOD GLUCOSE INCREASED [None]
  - ILL-DEFINED DISORDER [None]
